FAERS Safety Report 18664241 (Version 6)
Quarter: 2022Q3

REPORT INFORMATION
  Report Type: Spontaneous
  Country: GB (occurrence: GB)
  Receive Date: 20201225
  Receipt Date: 20220915
  Transmission Date: 20221027
  Serious: Yes (Other)
  Sender: FDA-Public Use
  Company Number: GB-BIOVITRUM-2020GB7874

PATIENT
  Age: 50 Year
  Sex: Male

DRUGS (65)
  1. ORFADIN [Suspect]
     Active Substance: NITISINONE
     Indication: Alkaptonuria
     Dosage: 2 MG
     Dates: start: 2012
  2. MORPHINE SULFATE [Concomitant]
     Active Substance: MORPHINE SULFATE
     Dosage: 50 MG
     Dates: start: 2012
  3. NAPROXEN [Concomitant]
     Active Substance: NAPROXEN
     Dosage: 500 MG
     Dates: start: 2012
  4. NAPROXEN [Concomitant]
     Active Substance: NAPROXEN
     Dates: start: 2015
  5. NAPROXEN [Concomitant]
     Active Substance: NAPROXEN
     Dates: start: 2016
  6. NAPROXEN [Concomitant]
     Active Substance: NAPROXEN
     Dates: start: 2017
  7. NAPROXEN [Concomitant]
     Active Substance: NAPROXEN
     Dates: start: 2018
  8. NAPROXEN [Concomitant]
     Active Substance: NAPROXEN
     Dates: start: 2019
  9. NAPROXEN [Concomitant]
     Active Substance: NAPROXEN
     Dosage: PRN
     Dates: start: 2020
  10. COCODAMOL [Concomitant]
     Active Substance: ACETAMINOPHEN\CODEINE PHOSPHATE
     Dosage: 500 MG
     Dates: start: 2012
  11. COCODAMOL [Concomitant]
     Active Substance: ACETAMINOPHEN\CODEINE PHOSPHATE
     Dates: start: 2015
  12. COCODAMOL [Concomitant]
     Active Substance: ACETAMINOPHEN\CODEINE PHOSPHATE
     Dates: start: 2016
  13. SIMVASTATIN [Concomitant]
     Active Substance: SIMVASTATIN
     Dosage: 20 MG
     Dates: start: 2012
  14. SIMVASTATIN [Concomitant]
     Active Substance: SIMVASTATIN
     Dates: start: 2013
  15. SIMVASTATIN [Concomitant]
     Active Substance: SIMVASTATIN
     Dates: start: 2014
  16. SIMVASTATIN [Concomitant]
     Active Substance: SIMVASTATIN
     Dates: start: 2015
  17. SIMVASTATIN [Concomitant]
     Active Substance: SIMVASTATIN
     Dates: start: 2016
  18. SIMVASTATIN [Concomitant]
     Active Substance: SIMVASTATIN
     Dates: start: 2017
  19. SIMVASTATIN [Concomitant]
     Active Substance: SIMVASTATIN
     Dates: start: 2018
  20. SIMVASTATIN [Concomitant]
     Active Substance: SIMVASTATIN
     Dates: start: 2019
  21. SIMVASTATIN [Concomitant]
     Active Substance: SIMVASTATIN
     Dates: start: 2020
  22. OLMESARTAN [Concomitant]
     Active Substance: OLMESARTAN
     Dosage: 20 MG
     Dates: start: 2012
  23. OLMESARTAN [Concomitant]
     Active Substance: OLMESARTAN
     Dates: start: 2013
  24. OLMESARTAN [Concomitant]
     Active Substance: OLMESARTAN
     Dates: start: 2014
  25. OLMESARTAN [Concomitant]
     Active Substance: OLMESARTAN
     Dates: start: 2015
  26. OLMESARTAN [Concomitant]
     Active Substance: OLMESARTAN
     Dates: start: 2016
  27. OLMESARTAN [Concomitant]
     Active Substance: OLMESARTAN
     Dates: start: 2017
  28. OLMESARTAN [Concomitant]
     Active Substance: OLMESARTAN
     Dates: start: 2018
  29. OLMESARTAN [Concomitant]
     Active Substance: OLMESARTAN
     Dates: start: 2019
  30. OLMESARTAN [Concomitant]
     Active Substance: OLMESARTAN
     Dates: start: 2020
  31. OMEPRAZOLE [Concomitant]
     Active Substance: OMEPRAZOLE
     Dosage: 20 MG
     Dates: start: 2012
  32. OMEPRAZOLE [Concomitant]
     Active Substance: OMEPRAZOLE
     Dates: start: 2013
  33. OMEPRAZOLE [Concomitant]
     Active Substance: OMEPRAZOLE
     Dates: start: 2014
  34. OMEPRAZOLE [Concomitant]
     Active Substance: OMEPRAZOLE
     Dates: start: 2015
  35. OMEPRAZOLE [Concomitant]
     Active Substance: OMEPRAZOLE
     Dates: start: 2016
  36. OMEPRAZOLE [Concomitant]
     Active Substance: OMEPRAZOLE
     Dates: start: 2017
  37. OMEPRAZOLE [Concomitant]
     Active Substance: OMEPRAZOLE
     Dates: start: 2018
  38. OMEPRAZOLE [Concomitant]
     Active Substance: OMEPRAZOLE
     Dates: start: 2019
  39. OMEPRAZOLE [Concomitant]
     Active Substance: OMEPRAZOLE
     Dates: start: 2020
  40. ALENDRONIC ACID [Concomitant]
     Active Substance: ALENDRONIC ACID
     Dates: start: 2013
  41. ALENDRONIC ACID [Concomitant]
     Active Substance: ALENDRONIC ACID
  42. ALENDRONIC ACID [Concomitant]
     Active Substance: ALENDRONIC ACID
     Dates: start: 2015
  43. ALENDRONIC ACID [Concomitant]
     Active Substance: ALENDRONIC ACID
     Dates: start: 2016
  44. ALENDRONIC ACID [Concomitant]
     Active Substance: ALENDRONIC ACID
     Dates: start: 2017
  45. ALENDRONIC ACID [Concomitant]
     Active Substance: ALENDRONIC ACID
     Dates: start: 2018
  46. CALCIUM\VITAMIN D [Concomitant]
     Active Substance: CALCIUM\VITAMIN D
     Dosage: 1000 MG
     Dates: start: 2013
  47. CALCIUM\VITAMIN D [Concomitant]
     Active Substance: CALCIUM\VITAMIN D
     Dates: start: 2014
  48. CALCIUM\VITAMIN D [Concomitant]
     Active Substance: CALCIUM\VITAMIN D
     Dates: start: 2015
  49. CALCIUM\VITAMIN D [Concomitant]
     Active Substance: CALCIUM\VITAMIN D
     Dates: start: 2016
  50. CALCIUM\VITAMIN D [Concomitant]
     Active Substance: CALCIUM\VITAMIN D
     Dates: start: 2017
  51. CALCIUM\VITAMIN D [Concomitant]
     Active Substance: CALCIUM\VITAMIN D
     Dosage: 500G/400IU
     Dates: start: 2018
  52. CALCIUM\VITAMIN D [Concomitant]
     Active Substance: CALCIUM\VITAMIN D
     Dates: start: 2020
  53. VITAMINS [Concomitant]
     Active Substance: VITAMINS
     Dosage: 400 IU
     Dates: start: 2013
  54. VITAMINS [Concomitant]
     Active Substance: VITAMINS
     Dates: start: 2015
  55. VITAMINS [Concomitant]
     Active Substance: VITAMINS
     Dates: start: 2016
  56. VITAMINS [Concomitant]
     Active Substance: VITAMINS
     Dates: start: 2017
  57. DIAZEPAM [Concomitant]
     Active Substance: DIAZEPAM
     Dosage: 5 MG
     Dates: start: 2013
  58. MAGNESIUM SALICYLATE [Concomitant]
     Active Substance: MAGNESIUM SALICYLATE
     Dosage: 20 MG
     Dates: start: 2015
  59. MAGNESIUM SALICYLATE [Concomitant]
     Active Substance: MAGNESIUM SALICYLATE
     Dates: start: 2016
  60. FERROUS FUMARATE [Concomitant]
     Active Substance: FERROUS FUMARATE
     Dosage: 360 MG
     Dates: start: 2015
  61. FERROUS FUMARATE [Concomitant]
     Active Substance: FERROUS FUMARATE
     Dates: start: 2016
  62. CALCIUM CARBONATE\CHOLECALCIFEROL [Concomitant]
     Active Substance: CALCIUM CARBONATE\CHOLECALCIFEROL
     Dates: start: 2019
  63. SOLIFENACIN [Concomitant]
     Active Substance: SOLIFENACIN
     Dosage: 5 MG
     Dates: start: 2019
  64. SOLIFENACIN [Concomitant]
     Active Substance: SOLIFENACIN
     Dates: start: 2020
  65. CODEINE [Concomitant]
     Active Substance: CODEINE
     Dosage: PRN?30 MG
     Dates: start: 2020

REACTIONS (3)
  - Lenticular opacities [Not Recovered/Not Resolved]
  - Cataract [Not Recovered/Not Resolved]
  - Amino acid level increased [Not Recovered/Not Resolved]

NARRATIVE: CASE EVENT DATE: 20120101
